FAERS Safety Report 8818191 (Version 1)
Quarter: 2012Q4

REPORT INFORMATION
  Report Type: 
  Country: DE (occurrence: DE)
  Receive Date: 20121002
  Receipt Date: 20121002
  Transmission Date: 20130627
  Serious: Yes (Congenital Anomaly)
  Sender: FDA-Public Use
  Company Number: DE-UCBSA-067666

PATIENT
  Age: 5 Month
  Sex: Male
  Weight: 2.89 kg

DRUGS (3)
  1. LEVETIRACETAM [Suspect]
     Indication: EPILEPSY
     Dosage: 1000-0-1000
     Route: 064
     Dates: start: 20110518, end: 20120204
  2. FOLIO FORTE [Concomitant]
     Indication: PROPHYLAXIS OF NEURAL TUBE DEFECT
     Dosage: DOSE: 0.8MG/DAY
     Route: 064
     Dates: start: 20110518, end: 20120204
  3. ERYTHROMYCIN [Concomitant]
     Indication: ACNE
     Route: 064
     Dates: start: 201108, end: 201111

REACTIONS (4)
  - Hemivertebra [Not Recovered/Not Resolved]
  - Plagiocephaly [Not Recovered/Not Resolved]
  - Scoliosis [Not Recovered/Not Resolved]
  - Foetal exposure during pregnancy [Recovered/Resolved]
